FAERS Safety Report 23768764 (Version 1)
Quarter: 2024Q2

REPORT INFORMATION
  Report Type: Spontaneous
  Country: CL (occurrence: CL)
  Receive Date: 20240422
  Receipt Date: 20240422
  Transmission Date: 20240716
  Serious: Yes (Death)
  Sender: FDA-Public Use
  Company Number: CL-002147023-NVSC2024CL083952

PATIENT
  Age: 7 Year
  Sex: Male

DRUGS (2)
  1. GLIVEC [Suspect]
     Active Substance: IMATINIB MESYLATE
     Indication: Philadelphia chromosome positive
     Dosage: 400 MG (4 X 100MG)
     Route: 065
  2. GLIVEC [Suspect]
     Active Substance: IMATINIB MESYLATE
     Indication: Acute lymphocytic leukaemia

REACTIONS (3)
  - Death [Fatal]
  - Fungal infection [Fatal]
  - Candida infection [Fatal]

NARRATIVE: CASE EVENT DATE: 20240126
